FAERS Safety Report 9165222 (Version 2)
Quarter: 2013Q4

REPORT INFORMATION
  Report Type: Spontaneous
  Country: GB (occurrence: None)
  Receive Date: 20130228
  Receipt Date: 20131008
  Transmission Date: 20140711
  Serious: Yes (Other)
  Sender: FDA-Public Use
  Company Number: AUR-APL-2013-01684

PATIENT
  Age: 63 Year
  Sex: Male
  Weight: 81.84 kg

DRUGS (3)
  1. CIPROFLOXACIN (CIPROFLOXACIN) [Suspect]
     Indication: URINARY TRACT INFECTION
     Route: 048
     Dates: start: 20130125, end: 20130205
  2. DUTASTERIDE (DUTASTERIDE) [Concomitant]
  3. SOTALOL [Concomitant]

REACTIONS (6)
  - Palpitations [None]
  - Heart rate increased [None]
  - Heart rate irregular [None]
  - Pollakiuria [None]
  - Atrial fibrillation [None]
  - Food interaction [None]
